FAERS Safety Report 23671591 (Version 1)
Quarter: 2024Q1

REPORT INFORMATION
  Report Type: Spontaneous
  Country: US (occurrence: US)
  Receive Date: 20240326
  Receipt Date: 20240326
  Transmission Date: 20240410
  Serious: Yes (Other)
  Sender: FDA-Public Use
  Company Number: US-STRIDES ARCOLAB LIMITED-2023SP015115

PATIENT
  Sex: Female

DRUGS (8)
  1. TRIAMCINOLONE ACETONIDE [Suspect]
     Active Substance: TRIAMCINOLONE ACETONIDE
     Indication: Epidermal naevus
     Dosage: UNK
     Route: 061
  2. TRIAMCINOLONE ACETONIDE [Suspect]
     Active Substance: TRIAMCINOLONE ACETONIDE
     Indication: Inflammation
  3. PIMECROLIMUS [Suspect]
     Active Substance: PIMECROLIMUS
     Indication: Epidermal naevus
     Dosage: UNK
     Route: 061
  4. PIMECROLIMUS [Suspect]
     Active Substance: PIMECROLIMUS
     Indication: Inflammation
  5. MOMETASONE [Suspect]
     Active Substance: MOMETASONE
     Indication: Epidermal naevus
     Dosage: UNK
     Route: 061
  6. MOMETASONE [Suspect]
     Active Substance: MOMETASONE
     Indication: Inflammation
  7. CALCIPOTRIENE [Suspect]
     Active Substance: CALCIPOTRIENE
     Indication: Epidermal naevus
     Dosage: UNK
     Route: 061
  8. CALCIPOTRIENE [Suspect]
     Active Substance: CALCIPOTRIENE
     Indication: Inflammation

REACTIONS (1)
  - Therapy non-responder [Unknown]
